FAERS Safety Report 4706072-9 (Version None)
Quarter: 2005Q2

REPORT INFORMATION
  Report Type: 
  Country: None (occurrence: None)
  Receive Date: 20050627
  Receipt Date: 20041005
  Transmission Date: 20051028
  Serious: Yes (Other)
  Sender: FDA-Public Use
  Company Number: US-JNJFOC-20040810038

PATIENT
  Age: 50 Year
  Sex: Female

DRUGS (26)
  1. FENTANYL [Suspect]
     Indication: PAIN
     Dosage: 75 UG/HR, 1 IN 72 HOUR, TRANSDERMAL
     Route: 062
     Dates: start: 20020101
  2. LORATAB (LORACARBEF) TABLETS [Concomitant]
  3. LANOXIN [Concomitant]
  4. CHROMOGEN (CHROMOCARB) TABLETS [Concomitant]
  5. ALDACTONE [Concomitant]
  6. LASIX [Concomitant]
  7. LIPRAM (PANCRELIPASE) TABLETS [Concomitant]
  8. SOMA [Concomitant]
  9. REGLAN (METOCLOPRAMIDE) TABLETS [Concomitant]
  10. ZAROXOLYN [Concomitant]
  11. PROZAC (FLUOXETINE HYDROCHLORIDE) TABLETS [Concomitant]
  12. INDERAL LA (PROPRANOLOL HYDROCHLORIDE) TABLETS [Concomitant]
  13. TOPAMAX [Concomitant]
  14. LIBRAX (LIBRAX) TABLETS [Concomitant]
  15. PERIACTIN (CYPROHEPTADINE HYDROCHLORIDE) TABLETS [Concomitant]
  16. MIACALCIN (CALCITONIN, SALMON) AEROSOLS [Concomitant]
  17. SYNTHROID (LEVOTHYROXINE SODIUM) TABLETS [Concomitant]
  18. TEGRETOL [Concomitant]
  19. PREVACID (LANSOPRAZOLE) TABLETS [Concomitant]
  20. VIVELLE (ESTRADIOL) PATCH [Concomitant]
  21. ADDERALL XR (OBETROL) TABLETS [Concomitant]
  22. IMMITREX (SUMATRIPTAN) INHALATION [Concomitant]
  23. DONNATOL (DONNATAL) TABLETS [Concomitant]
  24. B12 (CYANOCOBALAMIN) INJECTION [Concomitant]
  25. CARAFATE (SUCRALFATE) TABLETS [Concomitant]
  26. PAREGORIC (PAREGORIC) LIQUID [Concomitant]

REACTIONS (2)
  - NODULE [None]
  - WEIGHT DECREASED [None]
